FAERS Safety Report 6270060-4 (Version None)
Quarter: 2009Q3

REPORT INFORMATION
  Report Type: 
  Country: None (occurrence: None)
  Receive Date: 20090716
  Receipt Date: 20080212
  Transmission Date: 20100115
  Serious: Yes (Other)
  Sender: FDA-Public Use
  Company Number: US-ASTRAZENECA-2006UW10175

PATIENT
  Age: 7 Year
  Sex: Male
  Weight: 27.2 kg

DRUGS (13)
  1. SEROQUEL [Suspect]
     Indication: ATTENTION DEFICIT/HYPERACTIVITY DISORDER
     Dosage: 200MG-1000 MG
     Route: 048
     Dates: start: 20030101, end: 20060101
  2. SEROQUEL [Suspect]
     Indication: BIPOLAR DISORDER
     Dosage: 200MG-1000 MG
     Route: 048
     Dates: start: 20030101, end: 20060101
  3. SEROQUEL [Suspect]
     Indication: OBSESSIVE-COMPULSIVE DISORDER
     Dosage: 200MG-1000 MG
     Route: 048
     Dates: start: 20030101, end: 20060101
  4. SEROQUEL [Suspect]
     Dosage: 200-300 MG
     Route: 048
     Dates: start: 20040721
  5. SEROQUEL [Suspect]
     Dosage: 200-300 MG
     Route: 048
     Dates: start: 20040721
  6. SEROQUEL [Suspect]
     Dosage: 200-300 MG
     Route: 048
     Dates: start: 20040721
  7. ZYPREXA [Concomitant]
     Dosage: 5-10 MG
     Dates: start: 20060601
  8. ABILIFY [Concomitant]
     Dosage: 2-5 MG
     Dates: start: 20060101
  9. TRAZODONE [Concomitant]
     Dates: start: 20030101
  10. DEPAKOTE [Concomitant]
     Dates: start: 20060101
  11. RITALIN [Concomitant]
     Dates: start: 20060101
  12. CLONIDINE HCL [Concomitant]
     Route: 048
     Dates: start: 20061108
  13. CEFZIL [Concomitant]
     Route: 048
     Dates: start: 20061108

REACTIONS (8)
  - ACUTE TONSILLITIS [None]
  - ADENOTONSILLECTOMY [None]
  - ARRHYTHMIA [None]
  - GLUCOSE TOLERANCE IMPAIRED [None]
  - HYPERGLYCAEMIA [None]
  - LYMPHOID TISSUE HYPERPLASIA [None]
  - OBESITY [None]
  - TONSILLAR HYPERTROPHY [None]
